FAERS Safety Report 20404699 (Version 1)
Quarter: 2022Q1

REPORT INFORMATION
  Report Type: Spontaneous
  Country: DE (occurrence: DE)
  Receive Date: 20220131
  Receipt Date: 20220131
  Transmission Date: 20220423
  Serious: Yes (Hospitalization)
  Sender: FDA-Public Use
  Company Number: None

PATIENT
  Age: 71 Year
  Sex: Female

DRUGS (11)
  1. DOCETAXEL [Suspect]
     Active Substance: DOCETAXEL
     Indication: Product used for unknown indication
     Dosage: 75 MG/M2
  2. NINTEDANIB [Suspect]
     Active Substance: NINTEDANIB
     Indication: Product used for unknown indication
     Dosage: 100 MG, 1-0-1-0
     Route: 048
  3. TORSEMIDE [Concomitant]
     Active Substance: TORSEMIDE
     Dosage: 10 MG, 1-0-0-0
     Route: 048
  4. ASPIRIN [Concomitant]
     Active Substance: ASPIRIN
     Dosage: 100 MG, 0-1-0-0
     Route: 048
  5. METAMIZOL [Concomitant]
     Active Substance: METAMIZOLE SODIUM
     Dosage: 500 MG, 1-1-1-1
     Route: 048
  6. CANNABIDIOL [Concomitant]
     Active Substance: CANNABIDIOL
     Dosage: 5 GTT, 1-1-1-0, DROP
     Route: 048
  7. SERTRALINE HYDROCHLORIDE [Concomitant]
     Active Substance: SERTRALINE HYDROCHLORIDE
     Dosage: 25 MG, 1-0-0-0
     Route: 048
  8. PIPAMPERONE [Concomitant]
     Active Substance: PIPAMPERONE
     Dosage: 40 MG, 0-0-1-0
     Route: 048
  9. FOLIC ACID [Concomitant]
     Active Substance: FOLIC ACID
     Dosage: 0.4 MG, 1-0-0-0
     Route: 048
  10. NALOXONE HYDROCHLORIDE W/TILIDINE H [Concomitant]
     Dosage: 4/50 MG, 1-0-1-0
     Route: 048
  11. LEVETIRACETAM [Concomitant]
     Active Substance: LEVETIRACETAM
     Dosage: 500 MG, 1-0-1-0
     Route: 048

REACTIONS (3)
  - Dry mouth [Unknown]
  - Nausea [Unknown]
  - Vomiting [Unknown]
